FAERS Safety Report 19024673 (Version 2)
Quarter: 2021Q1

REPORT INFORMATION
  Report Type: Spontaneous
  Country: US (occurrence: US)
  Receive Date: 20210318
  Receipt Date: 20210319
  Transmission Date: 20210420
  Serious: Yes (Hospitalization, Other)
  Sender: FDA-Public Use
  Company Number: US-PFIZER INC-2021283382

PATIENT
  Age: 29 Year
  Sex: Male

DRUGS (4)
  1. GARCINIA CAMBOGIA COMP [Suspect]
     Active Substance: HERBALS\GARCINIA CAMBOGIA FRUIT
     Indication: WEIGHT LOSS DIET
     Dosage: UNK
  2. LINOLEIC ACID [Suspect]
     Active Substance: LINOLEIC ACID
     Indication: WEIGHT LOSS DIET
     Dosage: UNK
  3. L?CARNITINE [LEVOCARNITINE] [Suspect]
     Active Substance: LEVOCARNITINE
     Indication: WEIGHT LOSS DIET
     Dosage: UNK
  4. TESTOSTERONE CIPIONATE [Suspect]
     Active Substance: TESTOSTERONE
     Indication: WEIGHT LOSS DIET
     Dosage: UNK

REACTIONS (4)
  - Malignant hypertension [Unknown]
  - Off label use [Unknown]
  - Renal injury [Unknown]
  - Intentional product misuse [Unknown]
